FAERS Safety Report 25176579 (Version 3)
Quarter: 2025Q2

REPORT INFORMATION
  Report Type: Spontaneous
  Country: US (occurrence: US)
  Receive Date: 20250409
  Receipt Date: 20250508
  Transmission Date: 20250716
  Serious: Yes (Other)
  Sender: ALEXION PHARMACEUTICALS
  Company Number: US-AstraZeneca-CH-00844824A

PATIENT
  Weight: 117.46 kg

DRUGS (2)
  1. ULTOMIRIS [Suspect]
     Active Substance: RAVULIZUMAB-CWVZ
     Indication: Myasthenia gravis
     Dosage: 3600 MILLIGRAM, Q8W
  2. HUMAN IMMUNOGLOBULIN G [Concomitant]
     Active Substance: HUMAN IMMUNOGLOBULIN G

REACTIONS (4)
  - Myasthenia gravis crisis [Recovered/Resolved]
  - Blood pressure increased [Not Recovered/Not Resolved]
  - Anxiety [Recovered/Resolved]
  - Stress [Recovered/Resolved]
